FAERS Safety Report 9016244 (Version 1)
Quarter: 2013Q1

REPORT INFORMATION
  Report Type: Spontaneous
  Country: US (occurrence: US)
  Receive Date: 20130116
  Receipt Date: 20130116
  Transmission Date: 20140127
  Serious: Yes (Other)
  Sender: FDA-Public Use
  Company Number: US-AMGEN-USASP2013003073

PATIENT
  Sex: Female

DRUGS (5)
  1. NEULASTA [Suspect]
     Indication: PRODUCT USED FOR UNKNOWN INDICATION
     Dosage: UNK
     Dates: start: 20130102
  2. CYCLOPHOSPHAMIDE [Concomitant]
     Indication: LYMPHOMA
     Dosage: UNK
  3. DOXORUBICIN [Concomitant]
     Indication: LYMPHOMA
     Dosage: UNK
  4. VINCRISTINE [Concomitant]
     Indication: LYMPHOMA
     Dosage: UNK
  5. PREDNISONE [Concomitant]
     Indication: LYMPHOMA
     Dosage: UNK

REACTIONS (2)
  - Sepsis [Recovering/Resolving]
  - Neutropenia [Recovering/Resolving]
